FAERS Safety Report 14904790 (Version 1)
Quarter: 2018Q2

REPORT INFORMATION
  Report Type: Spontaneous
  Country: US (occurrence: US)
  Receive Date: 20180517
  Receipt Date: 20180517
  Transmission Date: 20180711
  Serious: No
  Sender: FDA-Public Use
  Company Number: US-SA-2017SA205836

PATIENT
  Age: 62 Year
  Sex: Male
  Weight: 72.57 kg

DRUGS (3)
  1. LANTUS SOLOSTAR [Suspect]
     Active Substance: INSULIN GLARGINE
     Route: 051
     Dates: end: 2017
  2. BASAGLAR [Concomitant]
     Active Substance: INSULIN GLARGINE
  3. SOLOSTAR [Suspect]
     Active Substance: DEVICE
     Dates: end: 2017

REACTIONS (1)
  - Blood glucose increased [Unknown]
